FAERS Safety Report 16281706 (Version 1)
Quarter: 2019Q2

REPORT INFORMATION
  Report Type: Spontaneous
  Country: IT (occurrence: IT)
  Receive Date: 20190507
  Receipt Date: 20190507
  Transmission Date: 20190711
  Serious: Yes (Other)
  Sender: FDA-Public Use
  Company Number: IT-MYLANLABS-2018M1030456

PATIENT
  Age: 62 Year
  Sex: Female

DRUGS (1)
  1. SIMVASTATINA MYLAN GENERICS 20 MG COMPRESSE RIVESTITE CON FILM [Suspect]
     Active Substance: SIMVASTATIN
     Indication: TYPE IIA HYPERLIPIDAEMIA
     Dosage: UNK

REACTIONS (1)
  - Type IIa hyperlipidaemia [Recovered/Resolved]

NARRATIVE: CASE EVENT DATE: 20150801
